FAERS Safety Report 16047253 (Version 1)
Quarter: 2019Q1

REPORT INFORMATION
  Report Type: Spontaneous
  Country: US (occurrence: US)
  Receive Date: 20190208
  Receipt Date: 20190208
  Transmission Date: 20190418
  Serious: No
  Sender: FDA-Public Use
  Company Number: None

PATIENT
  Age: 59 Year
  Sex: Female

DRUGS (4)
  1. URSODIOL 250 MG [Suspect]
     Active Substance: URSODIOL
     Indication: BILIARY CIRRHOSIS
     Route: 048
     Dates: start: 20180330
  2. OCALIVA [Concomitant]
     Active Substance: OBETICHOLIC ACID
  3. LEVOTHYROXINE 88UG [Concomitant]
  4. ATORVASTATIN [Concomitant]
     Active Substance: ATORVASTATIN

REACTIONS (1)
  - Epistaxis [None]

NARRATIVE: CASE EVENT DATE: 20190206
